FAERS Safety Report 20513366 (Version 2)
Quarter: 2023Q2

REPORT INFORMATION
  Report Type: Spontaneous
  Country: US (occurrence: US)
  Receive Date: 20220224
  Receipt Date: 20230403
  Transmission Date: 20230722
  Serious: Yes (Hospitalization)
  Sender: FDA-Public Use
  Company Number: US-AMNEAL PHARMACEUTICALS-2021-AMRX-03021

PATIENT
  Sex: Female

DRUGS (3)
  1. RYTARY [Suspect]
     Active Substance: CARBIDOPA\LEVODOPA
     Indication: Parkinson^s disease
     Dosage: 2 CAPSULES, TID
     Route: 048
  2. RYTARY [Suspect]
     Active Substance: CARBIDOPA\LEVODOPA
     Dosage: 3 CAPSULES, QID (6 AM, 10 AM, 2 PM, AND 6 PM)
     Route: 048
     Dates: start: 20210909
  3. RYTARY [Suspect]
     Active Substance: CARBIDOPA\LEVODOPA
     Dosage: 1 CAPSULES(23.75/95 MG), 5 /DAY
     Route: 048

REACTIONS (4)
  - Tremor [Unknown]
  - Hallucination [Unknown]
  - Paranoia [Unknown]
  - Parkinson^s disease [Not Recovered/Not Resolved]
